FAERS Safety Report 10490998 (Version 1)
Quarter: 2014Q4

REPORT INFORMATION
  Report Type: Spontaneous
  Country: US (occurrence: US)
  Receive Date: 20141002
  Receipt Date: 20141002
  Transmission Date: 20150528
  Serious: No
  Sender: FDA-Public Use
  Company Number: US-GLAXOSMITHKLINE-A1045590A

PATIENT
  Age: 84 Year
  Sex: Female

DRUGS (9)
  1. LEVALBUTEROL NEBULIZER [Concomitant]
  2. COUMADIN [Concomitant]
     Active Substance: WARFARIN SODIUM
  3. XOPENEX [Concomitant]
     Active Substance: LEVALBUTEROL HYDROCHLORIDE
  4. SOTALOL. [Concomitant]
     Active Substance: SOTALOL
  5. POTASSIUM CHLORIDE. [Concomitant]
     Active Substance: POTASSIUM CHLORIDE
  6. ADVAIR HFA [Suspect]
     Active Substance: FLUTICASONE PROPIONATE\SALMETEROL XINAFOATE
     Indication: ASTHMA
     Dosage: 1PUFF TWICE PER DAY
     Route: 055
     Dates: start: 20130930
  7. ISOSORBIDE [Concomitant]
     Active Substance: ISOSORBIDE
  8. WARFARIN [Concomitant]
     Active Substance: WARFARIN
  9. FUROSEMIDE. [Concomitant]
     Active Substance: FUROSEMIDE

REACTIONS (2)
  - Feeling abnormal [Unknown]
  - Middle insomnia [Recovered/Resolved]
